FAERS Safety Report 4476711-9 (Version None)
Quarter: 2004Q4

REPORT INFORMATION
  Report Type: 
  Country: None (occurrence: None)
  Receive Date: 20041015
  Receipt Date: 20041015
  Transmission Date: 20050328
  Serious: Yes (Hospitalization)
  Sender: FDA-Public Use
  Company Number: None

PATIENT
  Age: 62 Year
  Sex: Female
  Weight: 79 kg

DRUGS (2)
  1. BENZOCAINE SPRAY   20%   HURRICAINE [Suspect]
     Indication: BRONCHOSCOPY
     Dates: start: 20040809, end: 20040809
  2. BENZOCAINE SPRAY   20%   HURRICAINE [Suspect]
     Indication: THERAPEUTIC PROCEDURE
     Dates: start: 20040809, end: 20040809

REACTIONS (2)
  - BLOOD METHAEMOGLOBIN PRESENT [None]
  - OXYGEN SATURATION DECREASED [None]
